FAERS Safety Report 7252623-2 (Version None)
Quarter: 2011Q1

REPORT INFORMATION
  Report Type: 
  Country: None (occurrence: None)
  Receive Date: 20110129
  Receipt Date: 20100405
  Transmission Date: 20110831
  Serious: No
  Sender: FDA-Public Use
  Company Number: US-ABBOTT-10P-163-0637696-00

PATIENT
  Sex: Male

DRUGS (3)
  1. PAIN MEDICATION [Concomitant]
     Indication: PAIN MANAGEMENT
     Dates: start: 20100405
  2. ANTIBIOTICS [Concomitant]
     Indication: INFECTION PROPHYLAXIS
     Dosage: PRESCRIBED FOR 10 DAYS.
     Dates: start: 20100405
  3. HUMIRA [Suspect]
     Indication: PSORIATIC ARTHROPATHY
     Dates: start: 20100405

REACTIONS (1)
  - FINGER AMPUTATION [None]
